FAERS Safety Report 8690985 (Version 4)
Quarter: 2013Q2

REPORT INFORMATION
  Report Type: Spontaneous
  Country: BE (occurrence: BE)
  Receive Date: 20120730
  Receipt Date: 20130415
  Transmission Date: 20140414
  Serious: Yes (Hospitalization)
  Sender: FDA-Public Use
  Company Number: BE-009507513-2012SP030929

PATIENT
  Age: 69 Year
  Sex: Female
  Weight: 82 kg

DRUGS (12)
  1. PEGINTRON [Suspect]
     Indication: HEPATITIS C
     Dosage: 150 MICROGRAM, QW
     Dates: start: 20120424, end: 2012
  2. PEGINTRON [Suspect]
     Dosage: 120 MICROGRAM, QW
     Dates: start: 2012
  3. REBETOL [Suspect]
     Indication: HEPATITIS C
     Dosage: 1200- 1000 MG
     Route: 048
     Dates: start: 20120424, end: 20120808
  4. REBETOL [Suspect]
     Dosage: 2X 200 MG IN THE MORNING AND 200 MG IN THE EVENING
     Dates: start: 20120809, end: 2012
  5. REBETOL [Suspect]
     Dosage: 200 MG, UNK
  6. REBETOL [Suspect]
     Dosage: 1 TABLET IN THE MORNING AND 1 TABLET IN THE EVENING
     Route: 048
     Dates: start: 2012
  7. REBETOL [Suspect]
     Dosage: UNK
  8. JANUVIA [Concomitant]
     Dosage: 100 MG, QD
  9. GLUCOPHAGE [Concomitant]
     Dosage: 850 MG, QD
  10. VASEXTEN [Concomitant]
     Dosage: 20 MG, QD
  11. NOBITEN [Concomitant]
     Dosage: 5 MG, QD
  12. HYDROCHLOROTHIAZIDE (+) VALSARTAN [Concomitant]
     Dosage: 160 MG, QD

REACTIONS (5)
  - Anaemia [Unknown]
  - Tongue disorder [Recovered/Resolved]
  - Weight decreased [Not Recovered/Not Resolved]
  - Decreased appetite [Not Recovered/Not Resolved]
  - Gastric infection [Recovered/Resolved]
